FAERS Safety Report 9127119 (Version 1)
Quarter: 2013Q1

REPORT INFORMATION
  Report Type: Spontaneous
  Country: US (occurrence: US)
  Receive Date: 20130125
  Receipt Date: 20130125
  Transmission Date: 20140127
  Serious: Yes (Death, Hospitalization)
  Sender: FDA-Public Use
  Company Number: PHHY2013US006670

PATIENT
  Age: 33 Year
  Sex: Female

DRUGS (3)
  1. AMANTADINE [Suspect]
     Dosage: 62.5 MG, UNK
  2. CLONAZEPAM [Suspect]
     Dosage: 1.5 MG, UNK
  3. DIAZEPAM [Suspect]
     Dosage: 15 MG, UNK

REACTIONS (11)
  - Completed suicide [Fatal]
  - Ventricular tachycardia [Unknown]
  - Acute respiratory distress syndrome [Unknown]
  - Respiratory distress [Unknown]
  - Hypoxia [Unknown]
  - Septic shock [Unknown]
  - Convulsion [Unknown]
  - Cardiac arrest [Unknown]
  - Disorientation [Unknown]
  - Confusional state [Unknown]
  - Hallucination [Unknown]
